FAERS Safety Report 22755380 (Version 3)
Quarter: 2023Q4

REPORT INFORMATION
  Report Type: Report from Study
  Country: FR (occurrence: FR)
  Receive Date: 20230727
  Receipt Date: 20231012
  Transmission Date: 20240110
  Serious: Yes (Hospitalization, Other)
  Sender: FDA-Public Use
  Company Number: FR-IPSEN Group, Research and Development-2023-09540

PATIENT

DRUGS (21)
  1. CABOZANTINIB [Suspect]
     Active Substance: CABOZANTINIB
     Indication: Renal cell carcinoma
     Dosage: 40 MG, QD
     Route: 048
     Dates: start: 20230320, end: 20230421
  2. CABOZANTINIB [Suspect]
     Active Substance: CABOZANTINIB
     Dosage: 20 MG, QD
     Route: 048
     Dates: start: 20230428, end: 20230623
  3. NIVOLUMAB [Suspect]
     Active Substance: NIVOLUMAB
     Indication: Renal cell carcinoma
     Dosage: ONCE
     Dates: start: 20230324
  4. NIVOLUMAB [Suspect]
     Active Substance: NIVOLUMAB
     Dosage: ONCE
     Dates: start: 20230428
  5. NIVOLUMAB [Suspect]
     Active Substance: NIVOLUMAB
     Dosage: ONCE
     Dates: start: 20230526
  6. NIVOLUMAB [Suspect]
     Active Substance: NIVOLUMAB
     Dosage: ONCE
     Dates: start: 20230623
  7. NIVOLUMAB [Suspect]
     Active Substance: NIVOLUMAB
     Dosage: ONCE
     Dates: start: 20230721
  8. ENALAPRIL;LERCANIDIPINE [Concomitant]
     Indication: Hypertension
     Dosage: UNK
     Route: 048
  9. RILMENIDINE [Concomitant]
     Active Substance: RILMENIDINE
     Indication: Hypertension
     Dosage: UNK
  10. SPIRONOLACTONE [Concomitant]
     Active Substance: SPIRONOLACTONE
     Indication: Hypertension
     Dosage: UNK
     Route: 048
     Dates: end: 20230421
  11. COLLYRE TRAVOPROST TIMOLOL [Concomitant]
     Indication: Glaucoma
     Dosage: UNK, OCULAR USE
     Dates: end: 20230421
  12. COLLYRE TRAVOPROST TIMOLOL [Concomitant]
     Dosage: UNK, OCULAR USE
     Dates: start: 20230427
  13. Loxen [Concomitant]
     Indication: Hypertension
     Dosage: UNK
     Route: 048
     Dates: start: 20230421, end: 20230707
  14. AMLODIPINE [Concomitant]
     Active Substance: AMLODIPINE BESYLATE
     Indication: Hypertension
     Dosage: UNK
     Route: 048
     Dates: end: 20230421
  15. AMLODIPINE [Concomitant]
     Active Substance: AMLODIPINE BESYLATE
     Dosage: UNK
     Route: 048
     Dates: start: 20230708
  16. LATANOPROST [Concomitant]
     Active Substance: LATANOPROST
     Indication: Glaucoma
     Dosage: UNK, OCULAR USE
     Dates: start: 20230421, end: 20230426
  17. DORZOLAMIDE [Concomitant]
     Active Substance: DORZOLAMIDE
     Indication: Glaucoma
     Dosage: UNK, OCULAR USE
     Dates: start: 20230421, end: 20230426
  18. TIMOLOL [Concomitant]
     Active Substance: TIMOLOL
     Indication: Glaucoma
     Dosage: UNK, OCULAR USE
     Dates: start: 20230421, end: 20230426
  19. SODIUM CHLORIDE [Concomitant]
     Active Substance: SODIUM CHLORIDE
     Dosage: UNK
     Route: 048
     Dates: start: 20230526
  20. HYDROCHLOROTHIAZIDE [Concomitant]
     Active Substance: HYDROCHLOROTHIAZIDE
     Indication: Hypertension
     Dosage: UNK
     Route: 048
     Dates: start: 20230623
  21. ASPIRIN [Concomitant]
     Active Substance: ASPIRIN
     Indication: Hypertension
     Route: 048
     Dates: start: 20230708

REACTIONS (6)
  - Hyperthyroidism [Not Recovered/Not Resolved]
  - Hyponatraemia [Recovered/Resolved]
  - Transient ischaemic attack [Recovered/Resolved]
  - Dry eye [Recovered/Resolved]
  - Asthenia [Recovered/Resolved]
  - Asthenia [Recovered/Resolved]

NARRATIVE: CASE EVENT DATE: 20230421
